FAERS Safety Report 7746370-8 (Version None)
Quarter: 2011Q3

REPORT INFORMATION
  Report Type: 
  Country: None (occurrence: None)
  Receive Date: 20110907
  Receipt Date: 20110823
  Transmission Date: 20111222
  Serious: Yes (Death, Hospitalization)
  Sender: FDA-Public Use
  Company Number: 2011AP001854

PATIENT
  Age: 30 Year
  Sex: Male

DRUGS (3)
  1. MYCOPHENOLATE MOFETIL [Suspect]
     Indication: RENAL TRANSPLANT
  2. PREDNISOLONE [Suspect]
     Indication: TRANSPLANT REJECTION
     Dosage: 200 MG;QD
  3. TACROLIMUS [Suspect]
     Indication: RENAL TRANSPLANT

REACTIONS (7)
  - HERPES SIMPLEX HEPATITIS [None]
  - INTERNATIONAL NORMALISED RATIO INCREASED [None]
  - ACUTE HEPATIC FAILURE [None]
  - PYREXIA [None]
  - DIARRHOEA [None]
  - HERPES ZOSTER DISSEMINATED [None]
  - DERMATITIS ACNEIFORM [None]
